FAERS Safety Report 5390929-2 (Version None)
Quarter: 2007Q3

REPORT INFORMATION
  Report Type: 
  Country: None (occurrence: None)
  Receive Date: 20070716
  Receipt Date: 20070710
  Transmission Date: 20080115
  Serious: Yes (Other)
  Sender: FDA-Public Use
  Company Number: 015829

PATIENT
  Age: 16 Year
  Sex: Female

DRUGS (1)
  1. CLARAVIS [Suspect]
     Dosage: 40 MG, QD, ORAL
     Route: 048
     Dates: start: 20061110, end: 20070504

REACTIONS (3)
  - DEVICE FAILURE [None]
  - TREATMENT NONCOMPLIANCE [None]
  - UNINTENDED PREGNANCY [None]
